FAERS Safety Report 8292279 (Version 2)
Quarter: 2012Q4

REPORT INFORMATION
  Report Type: 
  Country: US (occurrence: US)
  Receive Date: 20111215
  Receipt Date: 20120912
  Transmission Date: 20130627
  Serious: Yes (Other)
  Sender: FDA-Public Use
  Company Number: US-ENDO PHARMACEUTICALS INC.-OPER20110325

PATIENT
  Sex: Female

DRUGS (1)
  1. OPANA ER [Suspect]
     Indication: DRUG ABUSE

REACTIONS (7)
  - Wrong technique in drug usage process [Unknown]
  - Incorrect route of drug administration [Unknown]
  - Drug diversion [Unknown]
  - Drug abuse [Unknown]
  - Dependence [Unknown]
  - Imprisonment [Not Recovered/Not Resolved]
  - Exposure during pregnancy [Not Recovered/Not Resolved]
